FAERS Safety Report 19175029 (Version 1)
Quarter: 2021Q2

REPORT INFORMATION
  Report Type: Spontaneous
  Country: FR (occurrence: FR)
  Receive Date: 20210424
  Receipt Date: 20210424
  Transmission Date: 20210717
  Serious: Yes (Life-Threatening, Hospitalization, Other)
  Sender: FDA-Public Use
  Company Number: FR-JNJFOC-20210446306

PATIENT
  Age: 74 Year
  Sex: Female
  Weight: 56 kg

DRUGS (17)
  1. ALPRAZOLAM. [Concomitant]
     Active Substance: ALPRAZOLAM
     Indication: ANXIETY
     Dosage: 0.5 MILLIGRAM, 1/DAY
     Route: 048
  2. FUROSEMIDE. [Concomitant]
     Active Substance: FUROSEMIDE
     Indication: CHRONIC KIDNEY DISEASE
     Dosage: 40 MILLIGRAM, 1/DAY
     Route: 048
  3. PARACETAMOL [Concomitant]
     Active Substance: ACETAMINOPHEN
     Indication: PAIN MANAGEMENT
     Dosage: 3 GRAM, 1/DAY
     Route: 048
  4. GAVISCON [ALGINIC ACID;ALUMINIUM HYDROXIDE;SODIUM ALGINATE;SODIUM BICA [Concomitant]
     Active Substance: ALGINIC ACID\ALUMINUM HYDROXIDE\SODIUM ALGINATE\SODIUM BICARBONATE
     Indication: GASTROOESOPHAGEAL REFLUX DISEASE
     Dosage: 3 DOSAGE FORM, AS NEEDED
     Route: 048
  5. BARACLUDE [Concomitant]
     Active Substance: ENTECAVIR
     Indication: CHRONIC HEPATITIS B
     Dosage: 3 MILLILITRE, 1/DAY
     Route: 048
  6. TRAMADOL HYDROCHLORIDE. [Suspect]
     Active Substance: TRAMADOL HYDROCHLORIDE
     Indication: PAIN MANAGEMENT
     Dosage: 30 DROP, AS NEEDED
     Route: 048
     Dates: start: 20191113
  7. VERAPAMIL HYDROCHLOIRDE [Concomitant]
     Active Substance: VERAPAMIL HYDROCHLORIDE
     Indication: HYPERTENSIVE HEART DISEASE
     Dosage: 240 MILLIGRAM, 1/DAY
     Route: 048
  8. RINOCLENIL [Concomitant]
     Active Substance: BECLOMETHASONE
     Indication: PNEUMONIA
     Dosage: 2 DOSAGE FORM, 1/DAY
     Route: 055
     Dates: start: 20210210
  9. PERINDOPRIL [Interacting]
     Active Substance: PERINDOPRIL
     Indication: HYPERTENSIVE HEART DISEASE
     Dosage: 5 MILLIGRAM, 1/DAY
     Route: 048
     Dates: start: 20210108
  10. ULTIBRO BREEZHALER [Concomitant]
     Active Substance: GLYCOPYRRONIUM\INDACATEROL
     Indication: PNEUMONIA
     Dosage: 1 DOSAGE FORM, 1/DAY
     Route: 055
     Dates: start: 20210210
  11. DYMISTA [Concomitant]
     Active Substance: AZELASTINE HYDROCHLORIDE\FLUTICASONE PROPIONATE
     Indication: PNEUMONIA
     Dosage: 2 DOSAGE FORM, 1/DAY
     Route: 045
     Dates: start: 20210210
  12. INORIAL [Concomitant]
     Active Substance: BILASTINE
     Indication: ALLERGIC SINUSITIS
     Dosage: 20 MILLIGRAM, 1/DAY
     Route: 048
  13. SODIUM CHLORIDE. [Concomitant]
     Active Substance: SODIUM CHLORIDE
     Indication: MINERAL SUPPLEMENTATION
     Dosage: 3 GRAM, 1/DAY
     Route: 048
  14. LEVOTHYROX [Concomitant]
     Active Substance: LEVOTHYROXINE
     Indication: HYPOTHYROIDISM
     Dosage: 50 MICROGRAM, 1/DAY
     Route: 048
  15. JANUMET [Concomitant]
     Active Substance: METFORMIN HYDROCHLORIDE\SITAGLIPTIN PHOSPHATE
     Indication: TYPE 2 DIABETES MELLITUS
     Dosage: 1 DOSAGE FORM, 1/DAY
     Route: 048
  16. KAYEXALATE [Concomitant]
     Active Substance: SODIUM POLYSTYRENE SULFONATE
     Indication: HYPERKALAEMIA
     Dosage: 1 DOSAGE FORM, 1/2 DAYS
     Route: 048
  17. FORTUM [CEFTAZIDIME PENTAHYDRATE] [Suspect]
     Active Substance: CEFTAZIDIME
     Indication: PNEUMONIA PSEUDOMONAL
     Dosage: 6 GRAM, 1/DAY
     Route: 041
     Dates: start: 20210217, end: 20210222

REACTIONS (2)
  - Status epilepticus [Recovered/Resolved]
  - Drug interaction [Unknown]

NARRATIVE: CASE EVENT DATE: 20210223
